FAERS Safety Report 10334799 (Version 5)
Quarter: 2014Q4

REPORT INFORMATION
  Report Type: Spontaneous
  Country: JP (occurrence: JP)
  Receive Date: 20140723
  Receipt Date: 20141203
  Transmission Date: 20150528
  Serious: Yes (Life-Threatening, Hospitalization, Other)
  Sender: FDA-Public Use
  Company Number: JP-PFIZER INC-2014198982

PATIENT
  Age: 43 Year
  Sex: Male
  Weight: 67.5 kg

DRUGS (13)
  1. CIPROFLOXACIN HYDROCHLORIDE. [Suspect]
     Active Substance: CIPROFLOXACIN HYDROCHLORIDE
     Indication: PYREXIA
  2. MAXIPIME [Suspect]
     Active Substance: CEFEPIME HYDROCHLORIDE
     Indication: COUGH
     Dosage: UNK
     Route: 042
  3. CIPROFLOXACIN HYDROCHLORIDE. [Suspect]
     Active Substance: CIPROFLOXACIN HYDROCHLORIDE
     Indication: COUGH
     Dosage: UNK
     Route: 042
  4. MAXIPIME [Suspect]
     Active Substance: CEFEPIME HYDROCHLORIDE
     Indication: PYREXIA
  5. VANCOMYCIN [Suspect]
     Active Substance: VANCOMYCIN
     Indication: COUGH
     Dosage: UNK
     Route: 042
     Dates: start: 201008, end: 201008
  6. VANCOMYCIN [Suspect]
     Active Substance: VANCOMYCIN
     Indication: PYREXIA
  7. FINIBAX [Suspect]
     Active Substance: DORIPENEM MONOHYDRATE
     Indication: PYREXIA
  8. FINIBAX [Suspect]
     Active Substance: DORIPENEM MONOHYDRATE
     Indication: DYSPNOEA
  9. FINIBAX [Suspect]
     Active Substance: DORIPENEM MONOHYDRATE
     Indication: COUGH
     Dosage: UNK
     Route: 042
  10. CIPROFLOXACIN HYDROCHLORIDE. [Suspect]
     Active Substance: CIPROFLOXACIN HYDROCHLORIDE
     Indication: DYSPNOEA
  11. ZYVOX [Suspect]
     Active Substance: LINEZOLID
     Dosage: UNK
     Route: 042
  12. VANCOMYCIN [Suspect]
     Active Substance: VANCOMYCIN
     Indication: DYSPNOEA
  13. MAXIPIME [Suspect]
     Active Substance: CEFEPIME HYDROCHLORIDE
     Indication: DYSPNOEA

REACTIONS (6)
  - Eosinophilic myocarditis [Recovered/Resolved]
  - Henoch-Schonlein purpura [Recovering/Resolving]
  - Multi-organ failure [Recovering/Resolving]
  - Cardiogenic shock [Recovering/Resolving]
  - No therapeutic response [Unknown]
  - Drug hypersensitivity [Recovering/Resolving]

NARRATIVE: CASE EVENT DATE: 201008
